FAERS Safety Report 6208274-1 (Version None)
Quarter: 2009Q2

REPORT INFORMATION
  Report Type: 
  Country: None (occurrence: None)
  Receive Date: 20090522
  Receipt Date: 20090429
  Transmission Date: 20091009
  Serious: Yes (Other)
  Sender: FDA-Public Use
  Company Number: 1000006380

PATIENT
  Age: 42 Year
  Sex: Female

DRUGS (3)
  1. ESCITALOPRAM [Suspect]
     Dosage: 10 MG (10 MG, 1 IN 1 D), ORAL
     Route: 048
     Dates: start: 20090101, end: 20090422
  2. ESCITALOPRAM [Suspect]
     Dosage: 5 MG (5 MG, 1 IN 1 D), ORAL
     Route: 048
     Dates: start: 20090301, end: 20090101
  3. MIRENA [Suspect]
     Indication: CONTRACEPTION
     Dosage: (52 MG), I.U.
     Dates: start: 20080101

REACTIONS (3)
  - HAEMOGLOBIN DECREASED [None]
  - IUCD COMPLICATION [None]
  - VAGINAL HAEMORRHAGE [None]
